FAERS Safety Report 18304973 (Version 4)
Quarter: 2020Q4

REPORT INFORMATION
  Report Type: Spontaneous
  Country: US (occurrence: US)
  Receive Date: 20200924
  Receipt Date: 20201018
  Transmission Date: 20210113
  Serious: No
  Sender: FDA-Public Use
  Company Number: US-AMGEN-USASP2020154437

PATIENT
  Age: 55 Year
  Sex: Female
  Weight: 92.06 kg

DRUGS (3)
  1. NEULASTA [Suspect]
     Active Substance: PEGFILGRASTIM
     Indication: PRODUCT USED FOR UNKNOWN INDICATION
     Dosage: 6 MILLIGRAM, AFTER CHEMO
     Route: 065
     Dates: start: 2020
  2. NEULASTA [Suspect]
     Active Substance: PEGFILGRASTIM
     Dosage: 6 MILLIGRAM, AFTER CHEMO
     Route: 065
  3. NEULASTA [Suspect]
     Active Substance: PEGFILGRASTIM
     Dosage: 6 MILLIGRAM, AFTER CHEMO
     Route: 065

REACTIONS (2)
  - Unintentional medical device removal [Unknown]
  - Device adhesion issue [Unknown]

NARRATIVE: CASE EVENT DATE: 20200922
